FAERS Safety Report 12660687 (Version 2)
Quarter: 2016Q3

REPORT INFORMATION
  Report Type: Spontaneous
  Country: US (occurrence: US)
  Receive Date: 20160817
  Receipt Date: 20160901
  Transmission Date: 20161109
  Serious: No
  Sender: FDA-Public Use
  Company Number: US-RELYPSA-RLY2016001059

PATIENT
  Age: 65 Year
  Sex: Female

DRUGS (10)
  1. VELTASSA [Suspect]
     Active Substance: PATIROMER
     Indication: HYPERKALAEMIA
     Dosage: 8.4 G, QD
     Route: 048
     Dates: start: 20160216
  2. PROAIR HFA [Concomitant]
     Active Substance: ALBUTEROL SULFATE
  3. COMBIVENT [Concomitant]
     Active Substance: ALBUTEROL SULFATE\IPRATROPIUM BROMIDE
  4. VITAMIN D3 [Concomitant]
     Active Substance: CHOLECALCIFEROL
     Dosage: 2000 U, UNK
  5. ALBUTEROL                          /00139501/ [Concomitant]
     Active Substance: ALBUTEROL
  6. ATORVASTATIN [Concomitant]
     Active Substance: ATORVASTATIN
     Dosage: 20 MG, UNK
  7. LOSARTAN POTASSIUM. [Concomitant]
     Active Substance: LOSARTAN POTASSIUM
     Dosage: 25 MG, UNK
  8. AMLODIPINE [Concomitant]
     Active Substance: AMLODIPINE BESYLATE
     Dosage: 5 MG, UNK
  9. WARFARIN [Concomitant]
     Active Substance: WARFARIN
     Dosage: 2 MG, UNK
  10. ALLOPURINOL. [Concomitant]
     Active Substance: ALLOPURINOL
     Dosage: 100 MG, UNK

REACTIONS (1)
  - Muscle spasms [Unknown]

NARRATIVE: CASE EVENT DATE: 201605
